FAERS Safety Report 15988312 (Version 4)
Quarter: 2019Q1

REPORT INFORMATION
  Report Type: Report from Study
  Country: CA (occurrence: CA)
  Receive Date: 20190221
  Receipt Date: 20190314
  Transmission Date: 20190418
  Serious: Yes (Death, Hospitalization, Other)
  Sender: FDA-Public Use
  Company Number: CA-BRISTOL-MYERS SQUIBB COMPANY-BMS-2018-108486

PATIENT
  Age: 92 Year
  Sex: Female

DRUGS (1)
  1. ABATACEPT [Suspect]
     Active Substance: ABATACEPT
     Indication: PRODUCT USED FOR UNKNOWN INDICATION
     Dosage: 125 MILLIGRAM, QWK
     Route: 058
     Dates: start: 20181108

REACTIONS (10)
  - Skin discolouration [Unknown]
  - Arterial disorder [Unknown]
  - Skin ulcer [Unknown]
  - Swelling [Unknown]
  - Gangrene [Unknown]
  - Diarrhoea [Recovered/Resolved]
  - Post procedural complication [Fatal]
  - Discharge [Unknown]
  - Blister [Unknown]
  - Pain in extremity [Unknown]

NARRATIVE: CASE EVENT DATE: 20181112
